FAERS Safety Report 15561530 (Version 2)
Quarter: 2018Q4

REPORT INFORMATION
  Report Type: Spontaneous
  Country: CA (occurrence: CA)
  Receive Date: 20181029
  Receipt Date: 20181107
  Transmission Date: 20190205
  Serious: Yes (Other)
  Sender: FDA-Public Use
  Company Number: CA-PFIZER INC-2018437499

PATIENT
  Age: 51 Year
  Sex: Female
  Weight: 77.1 kg

DRUGS (6)
  1. BETADERM [BETAMETHASONE] [Concomitant]
     Dosage: APPLY TO HANDS, AS NEEDED
     Route: 061
     Dates: start: 201807
  2. ENBREL [Concomitant]
     Active Substance: ETANERCEPT
     Dosage: WEEKLY(TUESDAY)
     Dates: start: 2015, end: 20181023
  3. DEPO-MEDROL [Suspect]
     Active Substance: METHYLPREDNISOLONE ACETATE
     Dosage: 80 MG/ML, UNK
     Dates: start: 201810
  4. MEZAVANT [Concomitant]
     Active Substance: MESALAMINE
     Dosage: 1.2 G, 4X/DAY
     Dates: start: 2016
  5. NAPROXEN. [Concomitant]
     Active Substance: NAPROXEN
     Dosage: 500 MG, 2X/DAY (AS NEEDED)
     Route: 048
  6. MOMETASONE [Concomitant]
     Active Substance: MOMETASONE
     Dosage: APPLY TO HANDS, AS NEEDED (APPLY TO HANDS)
     Route: 061
     Dates: start: 20180914

REACTIONS (2)
  - C-reactive protein increased [Unknown]
  - Rectal haemorrhage [Unknown]
